FAERS Safety Report 9900149 (Version 2)
Quarter: 2014Q2

REPORT INFORMATION
  Report Type: Spontaneous
  Country: US (occurrence: US)
  Receive Date: 20140214
  Receipt Date: 20140402
  Transmission Date: 20141212
  Serious: Yes (Other)
  Sender: FDA-Public Use
  Company Number: US-TAKEDA-2014TJP001467

PATIENT
  Sex: 0

DRUGS (1)
  1. PREVACID SOLUTAB [Suspect]
     Indication: PRODUCT USED FOR UNKNOWN INDICATION
     Dosage: 30 MG, UNK
     Route: 048

REACTIONS (5)
  - Anxiety [Unknown]
  - Activities of daily living impaired [Unknown]
  - Decreased appetite [Unknown]
  - Insomnia [Unknown]
  - Vomiting [Unknown]
